FAERS Safety Report 18601814 (Version 1)
Quarter: 2020Q4

REPORT INFORMATION
  Report Type: Spontaneous
  Country: GB (occurrence: GB)
  Receive Date: 20201210
  Receipt Date: 20201210
  Transmission Date: 20210114
  Serious: Yes (Hospitalization)
  Sender: FDA-Public Use
  Company Number: GB-MYLANLABS-2020M1100479

PATIENT
  Age: 69 Year
  Sex: Male

DRUGS (2)
  1. FLUOROURACIL. [Suspect]
     Active Substance: FLUOROURACIL
     Dosage: 1.2 G, SINGLE (FREQ: ONCE)
     Route: 040
  2. FLUOROURACIL. [Suspect]
     Active Substance: FLUOROURACIL
     Indication: ADENOCARCINOMA
     Dosage: UNK, SINGLE (FREQ: ONCE)
     Route: 042

REACTIONS (3)
  - Hypersensitivity [Recovered/Resolved]
  - Neutropenic sepsis [Unknown]
  - Myelosuppression [Unknown]
